FAERS Safety Report 23697998 (Version 1)
Quarter: 2024Q2

REPORT INFORMATION
  Report Type: Report from Study
  Country: EG (occurrence: EG)
  Receive Date: 20240402
  Receipt Date: 20240402
  Transmission Date: 20240716
  Serious: Yes (Other)
  Sender: FDA-Public Use
  Company Number: EG-SANDOZ-SDZ2024EG034698

PATIENT
  Age: 8 Year
  Sex: Female

DRUGS (1)
  1. OMNITROPE [Suspect]
     Active Substance: SOMATROPIN
     Indication: Growth hormone deficiency
     Dosage: 3 CARTRIDGES/ MONTH
     Route: 058
     Dates: start: 20211125

REACTIONS (7)
  - Fear of injection [Not Recovered/Not Resolved]
  - Injection site pain [Not Recovered/Not Resolved]
  - Expired device used [Unknown]
  - Wrong technique in device usage process [Not Recovered/Not Resolved]
  - Product preparation error [Unknown]
  - Incorrect product administration duration [Unknown]
  - Lack of injection site rotation [Unknown]

NARRATIVE: CASE EVENT DATE: 20211125
